FAERS Safety Report 5894334-1 (Version None)
Quarter: 2008Q3

REPORT INFORMATION
  Report Type: 
  Country: None (occurrence: None)
  Receive Date: 20080922
  Receipt Date: 20080908
  Transmission Date: 20090109
  Serious: Yes (Hospitalization, Congenital Anomaly)
  Sender: FDA-Public Use
  Company Number: 08US001086

PATIENT
  Sex: Female

DRUGS (4)
  1. LITHOBID [Suspect]
     Indication: DRUG USE FOR UNKNOWN INDICATION
     Dosage: 300 MG, MORNING, INTRA-UTERINE
     Route: 015
     Dates: start: 20060101, end: 20061201
  2. CELEXA [Concomitant]
  3. LORAZEPAM [Concomitant]
  4. ANTIEMETICS AND ANTINAUSEANTS [Concomitant]

REACTIONS (7)
  - BODY TEMPERATURE DECREASED [None]
  - CARDIAC MURMUR [None]
  - FAILURE TO THRIVE [None]
  - HEART RATE DECREASED [None]
  - MATERNAL DRUGS AFFECTING FOETUS [None]
  - PREMATURE BABY [None]
  - WEIGHT DECREASE NEONATAL [None]
